FAERS Safety Report 13938776 (Version 1)
Quarter: 2017Q3

REPORT INFORMATION
  Report Type: Spontaneous
  Country: US (occurrence: US)
  Receive Date: 20170906
  Receipt Date: 20170906
  Transmission Date: 20171127
  Serious: No
  Sender: FDA-Public Use
  Company Number: US-BAUSCH-BL-2017-020377

PATIENT
  Sex: Female

DRUGS (1)
  1. DORZOLAMIDE HCL TIMOLOL MALEATE [Suspect]
     Active Substance: DORZOLAMIDE HYDROCHLORIDE\TIMOLOL MALEATE
     Indication: PRODUCT USED FOR UNKNOWN INDICATION
     Route: 065

REACTIONS (4)
  - Rhinorrhoea [Unknown]
  - Lacrimation increased [Unknown]
  - Drug intolerance [Unknown]
  - Eye irritation [Unknown]
